FAERS Safety Report 12362149 (Version 2)
Quarter: 2019Q4

REPORT INFORMATION
  Report Type: Spontaneous
  Country: US (occurrence: US)
  Receive Date: 20160512
  Receipt Date: 20191213
  Transmission Date: 20200122
  Serious: No
  Sender: FDA-Public Use
  Company Number: US-UCBSA-2015033375

PATIENT
  Age: 72 Year
  Sex: Male
  Weight: 73.48 kg

DRUGS (2)
  1. CIMZIA [Suspect]
     Active Substance: CERTOLIZUMAB PEGOL
     Indication: PSORIATIC ARTHROPATHY
     Dosage: 400 MG, EV 4 WEEKS
     Route: 058
     Dates: end: 201506
  2. METHOTREXATE. [Concomitant]
     Active Substance: METHOTREXATE
     Indication: PSORIATIC ARTHROPATHY
     Dosage: 6 DF, WEEKLY (QW)
     Route: 048

REACTIONS (3)
  - Product dose omission [Unknown]
  - Psoriasis [Not Recovered/Not Resolved]
  - Psoriatic arthropathy [Not Recovered/Not Resolved]

NARRATIVE: CASE EVENT DATE: 201508
